FAERS Safety Report 10205053 (Version 1)
Quarter: 2014Q2

REPORT INFORMATION
  Report Type: Spontaneous
  Country: US (occurrence: US)
  Receive Date: 20140529
  Receipt Date: 20140529
  Transmission Date: 20141212
  Serious: No
  Sender: FDA-Public Use
  Company Number: US-BAYER-2014-080081

PATIENT
  Age: 67 Year
  Sex: Female
  Weight: 74.83 kg

DRUGS (1)
  1. ALEVE TABLET [Suspect]
     Indication: ANALGESIC THERAPY
     Dosage: 1-2 DF, PRN
     Route: 048
     Dates: start: 201403, end: 201405

REACTIONS (1)
  - Drug ineffective [None]
